FAERS Safety Report 14085087 (Version 1)
Quarter: 2017Q4

REPORT INFORMATION
  Report Type: Report from Study
  Country: None (occurrence: US)
  Receive Date: 20171013
  Receipt Date: 20171013
  Transmission Date: 20180321
  Serious: Yes (Hospitalization, Other)
  Sender: FDA-Public Use
  Company Number: US-ABBVIE-17K-163-2125690-00

PATIENT
  Age: 85 Year
  Sex: Female
  Weight: 85.81 kg

DRUGS (9)
  1. RIFAMPIN. [Suspect]
     Active Substance: RIFAMPIN
     Indication: MYCOBACTERIUM AVIUM COMPLEX INFECTION
     Route: 065
     Dates: start: 201709, end: 201710
  2. RIFAMPIN. [Suspect]
     Active Substance: RIFAMPIN
     Indication: PNEUMONIA
     Route: 065
     Dates: start: 201710
  3. ATENOLOL. [Concomitant]
     Active Substance: ATENOLOL
     Indication: PRODUCT USED FOR UNKNOWN INDICATION
     Dates: end: 2017
  4. HUMIRA [Suspect]
     Active Substance: ADALIMUMAB
     Indication: PSORIASIS
     Route: 058
     Dates: start: 201701, end: 201705
  5. ETHAMBUTOL [Suspect]
     Active Substance: ETHAMBUTOL HYDROCHLORIDE
     Indication: PNEUMONIA
     Route: 065
     Dates: start: 201710
  6. VERAPAMIL [Concomitant]
     Active Substance: VERAPAMIL HYDROCHLORIDE
     Indication: PRODUCT USED FOR UNKNOWN INDICATION
  7. METOPROLOL. [Concomitant]
     Active Substance: METOPROLOL
     Indication: PRODUCT USED FOR UNKNOWN INDICATION
  8. ETHAMBUTOL [Suspect]
     Active Substance: ETHAMBUTOL HYDROCHLORIDE
     Indication: MYCOBACTERIUM AVIUM COMPLEX INFECTION
     Route: 065
     Dates: start: 201709, end: 201710
  9. BABY ASPIRIN [Concomitant]
     Active Substance: ASPIRIN
     Indication: PRODUCT USED FOR UNKNOWN INDICATION

REACTIONS (26)
  - Immunodeficiency [Unknown]
  - Mycobacterium avium complex infection [Recovering/Resolving]
  - Hypopnoea [Recovering/Resolving]
  - Productive cough [Not Recovered/Not Resolved]
  - Bronchitis [Unknown]
  - Pulmonary mass [Unknown]
  - Psoriasis [Recovering/Resolving]
  - Rash [Not Recovered/Not Resolved]
  - Pharyngeal oedema [Recovered/Resolved]
  - Interstitial lung disease [Unknown]
  - Asthenia [Not Recovered/Not Resolved]
  - Body height decreased [Not Recovered/Not Resolved]
  - Heart rate irregular [Recovered/Resolved]
  - Insomnia [Not Recovered/Not Resolved]
  - Eye swelling [Recovered/Resolved]
  - Fatigue [Recovering/Resolving]
  - Eye infection [Recovered/Resolved]
  - Oral candidiasis [Recovered/Resolved]
  - Oxygen saturation decreased [Recovering/Resolving]
  - Pulmonary congestion [Recovering/Resolving]
  - Insomnia [Unknown]
  - Oedema peripheral [Recovered/Resolved]
  - Malaise [Recovering/Resolving]
  - Pneumonia [Recovering/Resolving]
  - Diastolic dysfunction [Unknown]
  - Chapped lips [Recovering/Resolving]

NARRATIVE: CASE EVENT DATE: 2017
